FAERS Safety Report 18151424 (Version 4)
Quarter: 2020Q4

REPORT INFORMATION
  Report Type: Spontaneous
  Country: US (occurrence: US)
  Receive Date: 20200814
  Receipt Date: 20201007
  Transmission Date: 20210113
  Serious: No
  Sender: FDA-Public Use
  Company Number: US-BAYER-2020-169957

PATIENT
  Age: 51 Year
  Sex: Female

DRUGS (1)
  1. ESTRADIOL HEMIHYDRATE [Suspect]
     Active Substance: ESTRADIOL HEMIHYDRATE
     Route: 062

REACTIONS (3)
  - Wrong technique in product usage process [None]
  - Product adhesion issue [None]
  - Incorrect dose administered by device [None]
